FAERS Safety Report 24582832 (Version 1)
Quarter: 2024Q4

REPORT INFORMATION
  Report Type: Spontaneous
  Country: JP (occurrence: JP)
  Receive Date: 20241106
  Receipt Date: 20241106
  Transmission Date: 20250115
  Serious: Yes (Hospitalization, Other)
  Sender: MERCK
  Company Number: JP-MSD-2410JPN004136J

PATIENT
  Age: 48 Year
  Sex: Female
  Weight: 46 kg

DRUGS (23)
  1. KEYTRUDA [Suspect]
     Active Substance: PEMBROLIZUMAB
     Indication: Lung neoplasm malignant
     Dosage: 200 MILLIGRAM, DOSE/BODY
     Route: 041
     Dates: start: 20240221, end: 20240605
  2. CISPLATIN [Suspect]
     Active Substance: CISPLATIN
     Indication: Lung neoplasm malignant
     Dosage: UNK
     Route: 065
     Dates: start: 20240221
  3. PEMETREXED DISODIUM [Suspect]
     Active Substance: PEMETREXED DISODIUM
     Indication: Lung neoplasm malignant
     Dosage: UNK
     Route: 065
     Dates: start: 20240221
  4. RIFADIN [Suspect]
     Active Substance: RIFAMPIN
     Indication: Pulmonary tuberculosis
     Dosage: UNK
     Route: 065
     Dates: start: 20231111, end: 2023
  5. RIFADIN [Suspect]
     Active Substance: RIFAMPIN
     Dosage: UNK
     Route: 065
     Dates: start: 20231226, end: 20240605
  6. RIFADIN [Suspect]
     Active Substance: RIFAMPIN
     Dosage: 3 CAPSULES/DAY
     Route: 065
     Dates: start: 20240621, end: 20240701
  7. RIFADIN [Suspect]
     Active Substance: RIFAMPIN
     Dosage: 15 MILLIGRAM
     Route: 065
     Dates: start: 20240716, end: 20240718
  8. RIFADIN [Suspect]
     Active Substance: RIFAMPIN
     Dosage: 30 MILLIGRAM
     Route: 065
     Dates: start: 20240719, end: 20240722
  9. RIFADIN [Suspect]
     Active Substance: RIFAMPIN
     Dosage: 75 MILLIGRAM
     Route: 065
     Dates: start: 20240723, end: 20240725
  10. RIFADIN [Suspect]
     Active Substance: RIFAMPIN
     Dosage: 150 MILLIGRAM
     Route: 065
     Dates: start: 20240726, end: 20240729
  11. RIFADIN [Suspect]
     Active Substance: RIFAMPIN
     Dosage: 300 MILLIGRAM
     Route: 065
     Dates: start: 20240730, end: 20240805
  12. RIFADIN [Suspect]
     Active Substance: RIFAMPIN
     Dosage: 450 MILLIGRAM
     Route: 065
     Dates: start: 20240806
  13. ISCOTIN [Suspect]
     Active Substance: ISONIAZID
     Indication: Pulmonary tuberculosis
     Dosage: 200 MILLIGRAM, QD
     Route: 065
     Dates: start: 20231111, end: 2023
  14. ISCOTIN [Suspect]
     Active Substance: ISONIAZID
     Dosage: UNK
     Route: 065
     Dates: start: 20231228, end: 20240605
  15. ISCOTIN [Suspect]
     Active Substance: ISONIAZID
     Dosage: 3 TABLETS/DAY
     Route: 065
     Dates: start: 20240621, end: 20240701
  16. ISCOTIN [Suspect]
     Active Substance: ISONIAZID
     Dosage: 10 MILLIGRAM
     Route: 065
     Dates: start: 20240716, end: 20240718
  17. ISCOTIN [Suspect]
     Active Substance: ISONIAZID
     Dosage: 20 MILLIGRAM
     Route: 065
     Dates: start: 20240719, end: 20240722
  18. ISCOTIN [Suspect]
     Active Substance: ISONIAZID
     Dosage: 50 MILLIGRAM
     Route: 065
     Dates: start: 20240723, end: 20240725
  19. ISCOTIN [Suspect]
     Active Substance: ISONIAZID
     Dosage: 100 MILLIGRAM
     Route: 065
     Dates: start: 20240726, end: 20240729
  20. ISCOTIN [Suspect]
     Active Substance: ISONIAZID
     Dosage: 200 MILLIGRAM
     Route: 065
     Dates: start: 20240730, end: 20240805
  21. ISCOTIN [Suspect]
     Active Substance: ISONIAZID
     Dosage: 300 MILLIGRAM
     Route: 065
     Dates: start: 20240806
  22. LANSOPRAZOLE [Concomitant]
     Active Substance: LANSOPRAZOLE
     Dosage: UNK
     Route: 065
  23. LEVOFLOXACIN HEMIHYDRATE [Concomitant]
     Active Substance: LEVOFLOXACIN
     Indication: Pulmonary tuberculosis
     Dosage: UNK
     Route: 065
     Dates: start: 20231225

REACTIONS (1)
  - Immune-mediated hepatic disorder [Recovering/Resolving]

NARRATIVE: CASE EVENT DATE: 20240605
